FAERS Safety Report 11275666 (Version 1)
Quarter: 2015Q3

REPORT INFORMATION
  Report Type: Spontaneous
  Country: US (occurrence: US)
  Receive Date: 20150716
  Receipt Date: 20150716
  Transmission Date: 20151125
  Serious: Yes (Other)
  Sender: FDA-Public Use
  Company Number: PHEH2015US013202

PATIENT
  Sex: Male

DRUGS (5)
  1. OXCARBAZEPINE. [Suspect]
     Active Substance: OXCARBAZEPINE
     Indication: PRODUCT USED FOR UNKNOWN INDICATION
     Dosage: UNK
     Route: 065
  2. TRILEPTAL [Suspect]
     Active Substance: OXCARBAZEPINE
     Indication: PRODUCT USED FOR UNKNOWN INDICATION
     Dosage: UNK
     Route: 065
  3. TRILEPTAL [Suspect]
     Active Substance: OXCARBAZEPINE
     Dosage: 2.5 PILLS IN EARLY PART OF THE DAY BETWEEN 9 AND 1. THEN ANOTHER 4 PILLS ABOUT 10 AT NIGHT
     Route: 065
  4. IBUPROFEN. [Concomitant]
     Active Substance: IBUPROFEN
     Indication: PRODUCT USED FOR UNKNOWN INDICATION
     Dosage: 300 MG, QD
     Route: 065
  5. ATORVASTATIN CALCIUM. [Concomitant]
     Active Substance: ATORVASTATIN CALCIUM
     Indication: PRODUCT USED FOR UNKNOWN INDICATION
     Dosage: 40 MG, UNK
     Route: 065

REACTIONS (11)
  - Fatigue [Unknown]
  - Muscle spasms [Unknown]
  - Agitation [Unknown]
  - Mania [Unknown]
  - Discomfort [Unknown]
  - Chest pain [Unknown]
  - Diplopia [Unknown]
  - Pain in extremity [Unknown]
  - Myalgia [Unknown]
  - Feeling abnormal [Unknown]
  - Tremor [Unknown]
